FAERS Safety Report 20938833 (Version 5)
Quarter: 2023Q4

REPORT INFORMATION
  Report Type: Other
  Country: DE (occurrence: None)
  Receive Date: 20220609
  Receipt Date: 20231221
  Transmission Date: 20240110
  Serious: No
  Sender: FDA-Public Use
  Company Number: DE-ROCHE-3068926

PATIENT
  Age: 45 Year
  Sex: Male

DRUGS (9)
  1. OCRELIZUMAB [Suspect]
     Active Substance: OCRELIZUMAB
     Indication: Relapsing multiple sclerosis
     Route: 042
     Dates: start: 20220302
  2. OCRELIZUMAB [Suspect]
     Active Substance: OCRELIZUMAB
     Route: 042
     Dates: start: 20220905
  3. CHOLECALCIFEROL [Concomitant]
     Active Substance: CHOLECALCIFEROL
     Indication: Vitamin D deficiency
     Route: 048
     Dates: start: 20160608
  4. NABIXIMOLS [Concomitant]
     Active Substance: NABIXIMOLS
     Indication: Multiple sclerosis
     Dosage: 4,1/ 3,85 MG
     Route: 048
     Dates: start: 201707
  5. PREDNISOLONE [Concomitant]
     Active Substance: PREDNISOLONE
     Route: 042
     Dates: start: 20220302, end: 20220302
  6. PREDNISOLONE [Concomitant]
     Active Substance: PREDNISOLONE
     Route: 042
     Dates: start: 20220316, end: 20220316
  7. EBASTINE [Concomitant]
     Active Substance: EBASTINE
     Dosage: TAKEN OVER 3 DAYS, TWICE A DAY, START 1 DAY BEFORE INFUSION
     Route: 048
     Dates: start: 20220301, end: 20220303
  8. EBASTINE [Concomitant]
     Active Substance: EBASTINE
     Dosage: TAKEN OVER 3 DAYS, TWICE A DAY, START 1 DAY BEFORE INFUSION
     Route: 048
     Dates: start: 20220315, end: 20220317
  9. EBASTINE [Concomitant]
     Active Substance: EBASTINE
     Dosage: TAKEN OVER 3 DAYS, TWICE A DAY, START 1 DAY BEFORE INFUSION
     Route: 048
     Dates: start: 20220904, end: 20220906

REACTIONS (4)
  - Blood immunoglobulin M decreased [Not Recovered/Not Resolved]
  - Influenza [Recovered/Resolved]
  - Lymphocyte count decreased [Not Recovered/Not Resolved]
  - COVID-19 [Recovered/Resolved]

NARRATIVE: CASE EVENT DATE: 20220316
